FAERS Safety Report 8939593 (Version 2)
Quarter: 2013Q1

REPORT INFORMATION
  Report Type: Spontaneous
  Country: US (occurrence: US)
  Receive Date: 20121203
  Receipt Date: 20130101
  Transmission Date: 20140127
  Serious: No
  Sender: FDA-Public Use
  Company Number: US-BIOGENIDEC-2012BI056004

PATIENT
  Age: 49 Year
  Sex: Female

DRUGS (1)
  1. TYSABRI [Suspect]
     Indication: MULTIPLE SCLEROSIS
     Route: 042
     Dates: start: 20120625

REACTIONS (4)
  - Fungal infection [Recovered/Resolved]
  - Vaginal mucosal blistering [Recovered/Resolved]
  - Rash pustular [Recovered/Resolved]
  - Oral herpes [Recovered/Resolved]
